FAERS Safety Report 7906530-X (Version None)
Quarter: 2011Q4

REPORT INFORMATION
  Report Type: 
  Country: None (occurrence: None)
  Receive Date: 20111110
  Receipt Date: 20111012
  Transmission Date: 20120403
  Serious: Yes (Other)
  Sender: FDA-Public Use
  Company Number: CA-JNJFOC-20110911721

PATIENT
  Sex: Female
  Weight: 52 kg

DRUGS (5)
  1. REMICADE [Suspect]
     Route: 042
     Dates: start: 20110926, end: 20110926
  2. DESLORATADINE [Concomitant]
     Indication: PREMEDICATION
     Route: 048
  3. REMICADE [Suspect]
     Indication: CROHN'S DISEASE
     Route: 042
     Dates: start: 20110908
  4. PREDNISONE TAB [Concomitant]
     Route: 048
  5. HYDROCORTISONE [Concomitant]
     Indication: PREMEDICATION
     Route: 042

REACTIONS (6)
  - INFLUENZA LIKE ILLNESS [None]
  - SPEECH DISORDER [None]
  - DYSPNOEA [None]
  - INFUSION RELATED REACTION [None]
  - CHEST DISCOMFORT [None]
  - CYANOSIS [None]
